FAERS Safety Report 10799901 (Version 1)
Quarter: 2015Q1

REPORT INFORMATION
  Report Type: Spontaneous
  Country: US (occurrence: US)
  Receive Date: 20150216
  Receipt Date: 20150216
  Transmission Date: 20150721
  Serious: No
  Sender: FDA-Public Use
  Company Number: US-ALLERGAN-1417957US

PATIENT
  Age: 61 Year
  Sex: Female

DRUGS (2)
  1. RESTASIS [Suspect]
     Active Substance: CYCLOSPORINE
     Dosage: 2 GTT, BID
     Route: 047
     Dates: start: 201403
  2. RESTASIS [Suspect]
     Active Substance: CYCLOSPORINE
     Indication: DRY EYE
     Dosage: 2 GTT, QD
     Route: 047

REACTIONS (3)
  - Nasal dryness [Recovered/Resolved]
  - Inappropriate schedule of drug administration [Unknown]
  - Dry throat [Recovered/Resolved]

NARRATIVE: CASE EVENT DATE: 201403
